FAERS Safety Report 7470674-X (Version None)
Quarter: 2011Q2

REPORT INFORMATION
  Report Type: 
  Country: None (occurrence: None)
  Receive Date: 20110429
  Receipt Date: 20110419
  Transmission Date: 20111010
  Serious: Yes (Death)
  Sender: FDA-Public Use
  Company Number: GB-ACCORD-008830

PATIENT
  Age: 55 Year
  Sex: Male

DRUGS (8)
  1. ETOPOSIDE [Suspect]
     Indication: BURKITT'S LYMPHOMA
  2. CYTARABINE [Suspect]
     Indication: BURKITT'S LYMPHOMA
  3. VINCRISTINE [Suspect]
     Indication: BURKITT'S LYMPHOMA
  4. CYCLOPHOSPHAMIDE [Concomitant]
     Indication: BURKITT'S LYMPHOMA
  5. IFOSFAMIDE [Suspect]
     Indication: BURKITT'S LYMPHOMA
  6. METHOTREXATE [Suspect]
     Indication: BURKITT'S LYMPHOMA
  7. MESNA [Suspect]
     Indication: BURKITT'S LYMPHOMA
  8. DOXORUBICIN HCL [Suspect]
     Indication: BURKITT'S LYMPHOMA

REACTIONS (2)
  - TOXICITY TO VARIOUS AGENTS [None]
  - OFF LABEL USE [None]
